FAERS Safety Report 21735713 (Version 1)
Quarter: 2022Q4

REPORT INFORMATION
  Report Type: Spontaneous
  Country: NL (occurrence: NL)
  Receive Date: 20221215
  Receipt Date: 20221215
  Transmission Date: 20230113
  Serious: Yes (Hospitalization)
  Sender: FDA-Public Use
  Company Number: NL-MYLANLABS-2022M1139545

PATIENT
  Sex: Male

DRUGS (9)
  1. PREDNISOLONE [Suspect]
     Active Substance: PREDNISOLONE
     Indication: Autoinflammatory disease
     Dosage: 1 MILLIGRAM/KILOGRAM
     Route: 065
     Dates: start: 201110, end: 201202
  2. PREDNISONE [Suspect]
     Active Substance: PREDNISONE
     Indication: Autoinflammatory disease
     Dosage: 5 MILLIGRAM, BID
     Route: 065
     Dates: start: 201204, end: 201207
  3. PRIVIGEN [Suspect]
     Active Substance: HUMAN IMMUNOGLOBULIN G
     Indication: Autoinflammatory disease
     Dosage: 2 GRAM PER KILOGRAM (2 G/KG  EVERY 4 WEEKS)
     Route: 042
     Dates: start: 201204, end: 201207
  4. INFLIXIMAB [Suspect]
     Active Substance: INFLIXIMAB
     Indication: Autoinflammatory disease
     Dosage: 5 MILLIGRAM/KILOGRAM, BIWEEKLY
     Route: 065
     Dates: start: 201204, end: 201207
  5. INFLIXIMAB [Suspect]
     Active Substance: INFLIXIMAB
     Dosage: 10 MILLIGRAM/KILOGRAM, BIWEEKLY
     Route: 065
     Dates: start: 201208
  6. METHYLPREDNISOLONE [Suspect]
     Active Substance: METHYLPREDNISOLONE
     Indication: Autoinflammatory disease
     Dosage: 15 MILLIGRAM/KILOGRAM
     Route: 042
     Dates: start: 201203
  7. METHYLPREDNISOLONE [Suspect]
     Active Substance: METHYLPREDNISOLONE
     Dosage: 25 MILLIGRAM/KILOGRAM
     Route: 042
     Dates: start: 201208
  8. RITUXIMAB [Suspect]
     Active Substance: RITUXIMAB
     Indication: Autoinflammatory disease
     Dosage: UNK (2 X 375 MG/M2)
     Route: 065
     Dates: start: 201204, end: 201207
  9. RITUXIMAB [Suspect]
     Active Substance: RITUXIMAB
     Dosage: UNK (1 X 375 MG/M2)
     Route: 065
     Dates: start: 201212

REACTIONS (4)
  - Drug ineffective [Unknown]
  - Failure to thrive [Unknown]
  - Growth disorder [Unknown]
  - Iatrogenic injury [Unknown]
